FAERS Safety Report 14276451 (Version 1)
Quarter: 2017Q4

REPORT INFORMATION
  Report Type: Spontaneous
  Country: CA (occurrence: CA)
  Receive Date: 20171212
  Receipt Date: 20171212
  Transmission Date: 20180321
  Serious: Yes (Other)
  Sender: FDA-Public Use
  Company Number: CA-AUROBINDO-AUR-APL-2017-45053

PATIENT
  Age: 92 Year
  Sex: Male

DRUGS (2)
  1. SERTRALINE [Concomitant]
     Active Substance: SERTRALINE HYDROCHLORIDE
     Indication: MAJOR DEPRESSION
     Dosage: ()
  2. OLANZAPINE. [Suspect]
     Active Substance: OLANZAPINE
     Indication: DEPRESSION
     Dosage: 5 MG, UNK

REACTIONS (6)
  - Cognitive disorder [Unknown]
  - Drug hypersensitivity [Unknown]
  - Hallucination, visual [Recovered/Resolved]
  - Abnormal dreams [Unknown]
  - Orthostatic hypotension [Unknown]
  - Parkinsonism [Recovering/Resolving]
